FAERS Safety Report 10426129 (Version 1)
Quarter: 2014Q1

REPORT INFORMATION
  Report Type: Spontaneous
  Country: US (occurrence: None)
  Receive Date: 20130314
  Receipt Date: 20130314
  Transmission Date: 20141002
  Serious: No
  Sender: FDA-Public Use
  Company Number: 1211USA004580

PATIENT
  Age: 57 Year
  Sex: Male
  Weight: 83.01 kg

DRUGS (14)
  1. PEG-INTRON (PEGINTRON ALFA-2B) POWDER FOR INJECTION, 120MICROGRAM [Suspect]
     Indication: HEPATITIS C
     Route: 058
     Dates: start: 20121101, end: 2012
  2. VICTRELIS (BOCEPREVIR) CAPSULE, 200MG [Suspect]
     Route: 048
     Dates: end: 2012
  3. RIBASPHERE (RIBAVIRIN) [Suspect]
     Dosage: 600 MG IN THE MORNING AND 400 MG IN THE EVENING
     Dates: end: 2012
  4. LACTULOSE [Concomitant]
  5. VICOPROFEN (HYDROCODONE BITARTRATE, IBUPROFEN) TABLET [Concomitant]
  6. DIOVAN (VALSARTAN) [Concomitant]
  7. ATENOLOL (ATENOLOL) [Concomitant]
  8. CLONAZEPAM [Concomitant]
  9. TAMSULOSIN HYDROCHLORIDE [Concomitant]
  10. OXYCODONE [Concomitant]
  11. CELEXA (CITALOPRAM HYDROBROMIDE) [Concomitant]
  12. ACIDOPHILUS (LACTOBACILLUS ACIDOPHILUS) [Concomitant]
  13. CHOLECALCIFEROL TABLET [Concomitant]
  14. VITAMINS (UNSPECIFIED) [Concomitant]

REACTIONS (6)
  - Tenderness [None]
  - Fatigue [None]
  - Nausea [None]
  - Chills [None]
  - Pyrexia [None]
  - Vomiting [None]
